FAERS Safety Report 15628438 (Version 1)
Quarter: 2018Q4

REPORT INFORMATION
  Report Type: Spontaneous
  Country: ES (occurrence: ES)
  Receive Date: 20181116
  Receipt Date: 20181116
  Transmission Date: 20190205
  Serious: Yes (Other)
  Sender: FDA-Public Use
  Company Number: ES-SHIRE-ES201843692

PATIENT

DRUGS (2)
  1. KIOVIG [Suspect]
     Active Substance: HUMAN IMMUNOGLOBULIN G
     Indication: MYELOFIBROSIS
     Dosage: 1000 MG/KG, QD
     Route: 065
     Dates: start: 201705
  2. RITUXIMAB. [Suspect]
     Active Substance: RITUXIMAB
     Indication: PRODUCT USED FOR UNKNOWN INDICATION
     Dosage: UNK, 2 DOSES
     Route: 065
     Dates: start: 201705

REACTIONS (1)
  - Drug ineffective for unapproved indication [Not Recovered/Not Resolved]
